FAERS Safety Report 9641330 (Version 1)
Quarter: 2013Q4

REPORT INFORMATION
  Report Type: Spontaneous
  Country: DE (occurrence: DE)
  Receive Date: 20131023
  Receipt Date: 20131023
  Transmission Date: 20140711
  Serious: Yes (Hospitalization)
  Sender: FDA-Public Use
  Company Number: DE-WATSON-2013-19031

PATIENT
  Age: 63 Year
  Sex: Female

DRUGS (1)
  1. LEVETIRACETAM [Suspect]
     Indication: EPILEPSY
     Dosage: UNK, UNK
     Route: 048
     Dates: start: 2012

REACTIONS (2)
  - Disturbance in attention [Unknown]
  - Electroencephalogram abnormal [Unknown]
